FAERS Safety Report 24692489 (Version 1)
Quarter: 2024Q4

REPORT INFORMATION
  Report Type: Spontaneous
  Country: US (occurrence: None)
  Receive Date: 20241129
  Receipt Date: 20241129
  Transmission Date: 20250114
  Serious: Yes (Hospitalization)
  Sender: Public
  Company Number: None

PATIENT
  Age: 10 Year
  Sex: Male
  Weight: 48.2 kg

DRUGS (1)
  1. DELANDISTROGENE MOXEPARVOVEC [Suspect]
     Active Substance: DELANDISTROGENE MOXEPARVOVEC
     Indication: Duchenne muscular dystrophy
     Dosage: FREQUENCY : ONCE;?
     Route: 040
     Dates: start: 20241001, end: 20241001

REACTIONS (1)
  - Hepatitis [None]

NARRATIVE: CASE EVENT DATE: 20241112
